FAERS Safety Report 7681962-6 (Version None)
Quarter: 2011Q3

REPORT INFORMATION
  Report Type: 
  Country: None (occurrence: None)
  Receive Date: 20110815
  Receipt Date: 20110810
  Transmission Date: 20111222
  Serious: Yes (Other)
  Sender: FDA-Public Use
  Company Number: US-BIOGENIDEC-2011BI017611

PATIENT
  Age: 37 Year
  Sex: Female

DRUGS (3)
  1. AVONEX [Suspect]
     Indication: MULTIPLE SCLEROSIS
     Route: 030
     Dates: start: 20110223, end: 20110502
  2. AVONEX [Suspect]
     Route: 030
     Dates: start: 20000530, end: 20060421
  3. AVONEX [Suspect]
     Route: 030
     Dates: start: 20090601, end: 20090801

REACTIONS (1)
  - ABORTION SPONTANEOUS [None]
